FAERS Safety Report 18079517 (Version 1)
Quarter: 2020Q3

REPORT INFORMATION
  Report Type: Spontaneous
  Country: GB (occurrence: GB)
  Receive Date: 20200728
  Receipt Date: 20200728
  Transmission Date: 20201103
  Serious: Yes (Other)
  Sender: FDA-Public Use
  Company Number: GB-TEVA-2020-GB-1805808

PATIENT
  Age: 29 Year
  Sex: Female
  Weight: 69.85 kg

DRUGS (2)
  1. CARBAMAZEPINE. [Suspect]
     Active Substance: CARBAMAZEPINE
     Indication: TEMPOROMANDIBULAR JOINT SYNDROME
     Dosage: 400 MG
     Route: 048
     Dates: start: 20200701, end: 20200703
  2. CARBAMAZEPINE. [Suspect]
     Active Substance: CARBAMAZEPINE
     Indication: NEURALGIA
     Dosage: 200 MG
     Route: 048
     Dates: start: 20200623, end: 20200630

REACTIONS (6)
  - Pruritus [Unknown]
  - Erythema [Unknown]
  - Lymphadenopathy [Not Recovered/Not Resolved]
  - Fatigue [Unknown]
  - Rash maculo-papular [Not Recovered/Not Resolved]
  - Headache [Unknown]

NARRATIVE: CASE EVENT DATE: 20200701
